FAERS Safety Report 6126801-X (Version None)
Quarter: 2009Q1

REPORT INFORMATION
  Report Type: 
  Country: None (occurrence: None)
  Receive Date: 20090320
  Receipt Date: 20090309
  Transmission Date: 20090719
  Serious: Yes (Hospitalization, Other)
  Sender: FDA-Public Use
  Company Number: JP-PFIZER INC-2009169969

PATIENT

DRUGS (8)
  1. ALDACTONE [Suspect]
     Indication: OEDEMA PERIPHERAL
     Dosage: 25 MG, 3X/DAY
     Route: 048
     Dates: start: 20081217
  2. TENORMIN [Concomitant]
     Dosage: UNK
     Route: 048
  3. ADALAT CC [Concomitant]
     Dosage: UNK
     Route: 048
  4. OMEPRAL [Concomitant]
     Dosage: UNK
     Route: 048
  5. MYSLEE [Concomitant]
     Dosage: UNK
     Route: 048
  6. AMINOLEBAN [Concomitant]
     Dosage: UNK
     Route: 048
  7. LASIX [Concomitant]
     Dosage: UNK
     Route: 048
  8. PURSENNID [Concomitant]
     Dosage: UNK
     Route: 048

REACTIONS (6)
  - BLOOD BLISTER [None]
  - FALL [None]
  - HAEMORRHAGE SUBCUTANEOUS [None]
  - HAEMORRHAGIC ANAEMIA [None]
  - OSTEOPOROSIS [None]
  - SKIN HAEMORRHAGE [None]
